FAERS Safety Report 9975182 (Version 2)
Quarter: 2015Q1

REPORT INFORMATION
  Report Type: Report from Study
  Country: US (occurrence: US)
  Receive Date: 20140306
  Receipt Date: 20150216
  Transmission Date: 20150721
  Serious: No
  Sender: FDA-Public Use
  Company Number: US-ABBVIE-13P-163-1160409-00

PATIENT
  Age: 33 Year
  Sex: Male
  Weight: 113.5 kg

DRUGS (2)
  1. HUMIRA [Suspect]
     Active Substance: ADALIMUMAB
     Indication: PSORIATIC ARTHROPATHY
     Dates: start: 201301, end: 201302
  2. HUMIRA [Suspect]
     Active Substance: ADALIMUMAB
     Dates: start: 201302, end: 201401

REACTIONS (5)
  - Drug effect decreased [Not Recovered/Not Resolved]
  - Drug effect decreased [Unknown]
  - Drug ineffective [Recovered/Resolved]
  - Arthralgia [Recovering/Resolving]
  - Pain in extremity [Recovering/Resolving]

NARRATIVE: CASE EVENT DATE: 201301
